APPROVED DRUG PRODUCT: KYTRIL
Active Ingredient: GRANISETRON HYDROCHLORIDE
Strength: EQ 0.1MG BASE/ML (EQ 0.1MG BASE/ML) **Federal Register determination that product was not discontinued or withdrawn for safety or effectiveness reasons**
Dosage Form/Route: INJECTABLE;INJECTION
Application: N020239 | Product #003
Applicant: HOFFMANN LA ROCHE INC
Approved: Sep 17, 2004 | RLD: Yes | RS: No | Type: DISCN